FAERS Safety Report 9340747 (Version 2)
Quarter: 2013Q2

REPORT INFORMATION
  Report Type: Report from Study
  Country: NL (occurrence: NL)
  Receive Date: 20130610
  Receipt Date: 20130614
  Transmission Date: 20140414
  Serious: Yes (Hospitalization)
  Sender: FDA-Public Use
  Company Number: NL-GLAXOSMITHKLINE-Z0019575A

PATIENT
  Age: 69 Year
  Sex: Female
  Weight: 99 kg

DRUGS (5)
  1. TRAMETINIB [Suspect]
     Indication: MALIGNANT MELANOMA
     Dosage: 2MG PER DAY
     Route: 048
     Dates: start: 20130101
  2. DABRAFENIB [Suspect]
     Indication: MALIGNANT MELANOMA
     Dosage: 150MG TWICE PER DAY
     Route: 048
     Dates: start: 20130101
  3. OMEPRAZOL [Concomitant]
     Indication: PROPHYLAXIS
     Dosage: 20MG PER DAY
     Route: 048
     Dates: start: 20130425, end: 20130605
  4. ALGELDRATE [Concomitant]
     Indication: PROPHYLAXIS
     Dosage: 600MG AS REQUIRED
     Route: 048
     Dates: start: 20130426, end: 20130605
  5. MAGNESIUM HYDROXIDE [Concomitant]
     Indication: PROPHYLAXIS
     Dosage: 300MG AS REQUIRED
     Route: 048
     Dates: start: 20130426, end: 20130605

REACTIONS (1)
  - Pyrexia [Recovered/Resolved]
